FAERS Safety Report 7377693-2 (Version None)
Quarter: 2011Q1

REPORT INFORMATION
  Report Type: 
  Country: None (occurrence: None)
  Receive Date: 20110328
  Receipt Date: 20110323
  Transmission Date: 20110831
  Serious: Yes (Other)
  Sender: FDA-Public Use
  Company Number: GB-PFIZER INC-GB-WYE-G06304510

PATIENT
  Sex: Male

DRUGS (2)
  1. ZYVOX [Interacting]
     Indication: PNEUMONIA
     Dosage: UNK
     Route: 065
  2. VENLAFAXINE HCL [Suspect]
     Dosage: UNK
     Route: 065

REACTIONS (2)
  - DRUG INTERACTION [None]
  - CONVULSION [None]
